FAERS Safety Report 8469642 (Version 4)
Quarter: 2012Q4

REPORT INFORMATION
  Report Type: 
  Country: GB (occurrence: SE)
  Receive Date: 20120321
  Receipt Date: 20121206
  Transmission Date: 20130627
  Serious: Yes (Other)
  Sender: FDA-Public Use
  Company Number: PHHY2012SE022810

PATIENT
  Age: 49 Year
  Sex: Female

DRUGS (11)
  1. CLOZAPINE [Suspect]
     Route: 048
  2. LEPONEX [Suspect]
     Dosage: 100 mg, UNK
     Route: 048
  3. CLOZAPINE ACTAVIS [Suspect]
     Dosage: 100 mg, UNK
     Route: 048
  4. METFORMIN [Concomitant]
  5. TROMBYL [Concomitant]
  6. METOPROLOL [Concomitant]
  7. PROPAVAN [Concomitant]
  8. CLOMIPRAMINE [Concomitant]
  9. EZETROL [Concomitant]
  10. SPIRIVA [Concomitant]
  11. NOVOMIX [Concomitant]

REACTIONS (7)
  - Fall [Recovered/Resolved]
  - Dementia [Recovered/Resolved]
  - Diabetes mellitus [Recovered/Resolved]
  - Somnolence [Recovered/Resolved]
  - Incontinence [Recovered/Resolved]
  - Blood pressure decreased [Recovered/Resolved]
  - Psychiatric symptom [Recovered/Resolved]
